FAERS Safety Report 8624315-6 (Version None)
Quarter: 2012Q3

REPORT INFORMATION
  Report Type: 
  Country: None (occurrence: None)
  Receive Date: 20120827
  Receipt Date: 20120824
  Transmission Date: 20120928
  Serious: Yes (Life-Threatening, Hospitalization)
  Sender: FDA-Public Use
  Company Number: FR-AMGEN-FRANI2012042392

PATIENT
  Age: 71 Year
  Sex: Male
  Weight: 64 kg

DRUGS (8)
  1. VECTIBIX [Suspect]
     Indication: COLORECTAL CANCER METASTATIC
     Dosage: 100 MG, Q2WK
     Dates: start: 20120222
  2. FLUOROURACIL [Concomitant]
     Indication: COLORECTAL CANCER METASTATIC
     Dosage: 680 MG, Q2WK
     Route: 042
     Dates: start: 20120222
  3. ACETAMINOPHEN [Concomitant]
  4. ALFUZOSIN HYDROCHLORIDE [Concomitant]
  5. DOXYCYCLINE [Concomitant]
  6. OXALIPLATIN [Concomitant]
     Indication: COLORECTAL CANCER METASTATIC
     Dosage: 135 MG, Q2WK
     Route: 042
     Dates: start: 20120222, end: 20120530
  7. LEUCOVORIN CALCIUM [Concomitant]
     Indication: COLORECTAL CANCER METASTATIC
     Dosage: 680 MG, Q2WK
     Route: 042
     Dates: start: 20120222
  8. TETRALYSAL [Concomitant]

REACTIONS (1)
  - RENAL FAILURE [None]
